FAERS Safety Report 25095587 (Version 2)
Quarter: 2025Q2

REPORT INFORMATION
  Report Type: Spontaneous
  Country: US (occurrence: US)
  Receive Date: 20250319
  Receipt Date: 20250404
  Transmission Date: 20250716
  Serious: Yes (Hospitalization, Other)
  Sender: DELCATH SYSTEMS
  Company Number: US-DELCATH SYSTEMS-DELC-000012

PATIENT
  Age: 63 Year
  Sex: Male

DRUGS (1)
  1. HEPZATO [Suspect]
     Active Substance: MELPHALAN
     Indication: Metastases to liver
     Route: 013
     Dates: start: 20250303, end: 20250303

REACTIONS (6)
  - Acute respiratory distress syndrome [Recovered/Resolved with Sequelae]
  - Pneumonitis [Recovered/Resolved]
  - Post embolisation syndrome [Unknown]
  - Hypoxia [Recovered/Resolved]
  - Pulmonary oedema [Recovered/Resolved]
  - Pulmonary congestion [Recovered/Resolved]

NARRATIVE: CASE EVENT DATE: 20250304
